FAERS Safety Report 8553416-6 (Version None)
Quarter: 2012Q3

REPORT INFORMATION
  Report Type: 
  Country: None (occurrence: None)
  Receive Date: 20120731
  Receipt Date: 20120726
  Transmission Date: 20120928
  Serious: Yes (Hospitalization)
  Sender: FDA-Public Use
  Company Number: US-BAYER-2012-075753

PATIENT
  Age: 23 Month

DRUGS (2)
  1. GADAVIST [Suspect]
     Indication: NUCLEAR MAGNETIC RESONANCE IMAGING BRAIN
     Dosage: 1.5 ML, UNK
     Route: 042
  2. PROPOFOL [Concomitant]
     Dosage: 110 MG, UNK

REACTIONS (3)
  - UNEVALUABLE EVENT [None]
  - ANAPHYLACTIC SHOCK [None]
  - SWELLING FACE [None]
